FAERS Safety Report 19443645 (Version 3)
Quarter: 2022Q1

REPORT INFORMATION
  Report Type: Spontaneous
  Country: US (occurrence: US)
  Receive Date: 20210621
  Receipt Date: 20220308
  Transmission Date: 20220423
  Serious: Yes (Other)
  Sender: FDA-Public Use
  Company Number: US-PFIZER INC-2021680765

PATIENT
  Age: 50 Year
  Sex: Female

DRUGS (2)
  1. XELJANZ XR [Suspect]
     Active Substance: TOFACITINIB CITRATE
     Dosage: UNK
     Dates: start: 20210321
  2. XELJANZ XR [Suspect]
     Active Substance: TOFACITINIB CITRATE
     Dosage: 11 MG
     Dates: start: 20210402, end: 20220202

REACTIONS (6)
  - Neuropathy peripheral [Unknown]
  - Rheumatoid arthritis [Unknown]
  - Alopecia [Unknown]
  - Plantar fasciitis [Unknown]
  - Peripheral swelling [Unknown]
  - Hypoaesthesia [Unknown]
